FAERS Safety Report 7060532 (Version 4)
Quarter: 2012Q4

REPORT INFORMATION
  Report Type: 
  Country: DE (occurrence: DE)
  Receive Date: 20090724
  Receipt Date: 20120831
  Transmission Date: 20130627
  Serious: Yes (Death, Hospitalization)
  Sender: FDA-Public Use
  Company Number: DE-RANBAXY-2009RR-25675

PATIENT
  Age: 69 Year
  Sex: Male
  Weight: 84 kg

DRUGS (9)
  1. PARACETAMOL [Suspect]
     Indication: PROCEDURAL PAIN
     Dosage: 500 mg, tid
     Route: 048
     Dates: start: 20090226, end: 20090227
  2. IBUPROFEN [Suspect]
     Indication: OSTEOARTHRITIS
     Dosage: 600 mg, qd
     Route: 048
     Dates: start: 2007, end: 20090220
  3. RAMIPRIL [Suspect]
     Indication: HYPERTENSION
     Dosage: 2.5-0-5 mg, bid
     Route: 048
     Dates: start: 2000
  4. VOLTAREN [Suspect]
     Indication: PROCEDURAL PAIN
     Dosage: 75 mg, bid
     Route: 048
     Dates: start: 20090225, end: 20090227
  5. OMEPRAZOLE [Suspect]
     Indication: PROPHYLAXIS AGAINST GASTROINTESTINAL ULCER
     Dosage: 40 mg, qd
     Route: 048
     Dates: start: 20090225
  6. BERLOSIN [Concomitant]
     Indication: PROCEDURAL PAIN
     Dosage: 500 mg, tid
     Route: 048
     Dates: start: 20090226, end: 20090227
  7. CEFUROXIME [Concomitant]
     Indication: INFECTION PROPHYLAXIS
     Dosage: 1.5 mg, qd
     Route: 041
     Dates: start: 20090224, end: 20090224
  8. FLOTRIN [Concomitant]
     Indication: BENIGN PROSTATIC HYPERPLASIA
     Dosage: 2 mg, qd
     Route: 048
     Dates: start: 2005
  9. NORSPAN [Concomitant]
     Indication: PROCEDURAL PAIN
     Dosage: UNK, qd
     Route: 062
     Dates: start: 20090224, end: 20090302

REACTIONS (1)
  - Pancreatitis acute [Recovered/Resolved]
